FAERS Safety Report 9238746 (Version 1)
Quarter: 2013Q2

REPORT INFORMATION
  Report Type: Spontaneous
  Country: US (occurrence: US)
  Receive Date: 20130418
  Receipt Date: 20130418
  Transmission Date: 20140414
  Serious: Yes (Other)
  Sender: FDA-Public Use
  Company Number: PHEH2013US008473

PATIENT
  Sex: Female

DRUGS (7)
  1. DIOVAN [Suspect]
     Dosage: 320 MG, UNK
  2. FUROSEMIDE [Concomitant]
     Dosage: 40 MG, UNK
  3. HUMALOG [Concomitant]
  4. CARVEDILOL [Concomitant]
  5. ZEGERID [Concomitant]
  6. CHLORTHALIDONE [Concomitant]
     Dosage: 25 MG, UNK
  7. CALTRATE WITH VITAMIN D [Concomitant]

REACTIONS (5)
  - Diabetes mellitus [Unknown]
  - Fibromyalgia [Unknown]
  - Blood pressure decreased [Unknown]
  - Headache [Unknown]
  - Dizziness [Unknown]
